FAERS Safety Report 9426575 (Version 1)
Quarter: 2013Q3

REPORT INFORMATION
  Report Type: Spontaneous
  Country: US (occurrence: US)
  Receive Date: 20130730
  Receipt Date: 20130730
  Transmission Date: 20140515
  Serious: No
  Sender: FDA-Public Use
  Company Number: US-PFIZER INC-2013219835

PATIENT
  Age: 67 Year
  Sex: Male
  Weight: 126 kg

DRUGS (3)
  1. TIKOSYN [Suspect]
     Indication: ATRIAL FIBRILLATION
     Dosage: 375 UG, 2X/DAY
     Route: 048
  2. DILTIAZEM [Concomitant]
     Dosage: UNK
  3. NIACIN [Concomitant]
     Dosage: UNK

REACTIONS (1)
  - Blood cholesterol increased [Unknown]
